FAERS Safety Report 5015800-7 (Version None)
Quarter: 2006Q2

REPORT INFORMATION
  Report Type: 
  Country: None (occurrence: None)
  Receive Date: 20060525
  Receipt Date: 20060515
  Transmission Date: 20061013
  Serious: Yes (Other)
  Sender: FDA-Public Use
  Company Number: 8016859

PATIENT
  Age: 25 Year
  Sex: Female

DRUGS (1)
  1. KEPPRA [Suspect]
     Indication: CONVULSION
     Dosage: 1000 MG 2/D PO
     Route: 048
     Dates: start: 20030101

REACTIONS (3)
  - ABORTION INDUCED [None]
  - DRUG EXPOSURE DURING PREGNANCY [None]
  - PREGNANCY [None]
